FAERS Safety Report 5889940-4 (Version None)
Quarter: 2008Q3

REPORT INFORMATION
  Report Type: 
  Country: None (occurrence: None)
  Receive Date: 20080919
  Receipt Date: 20080916
  Transmission Date: 20090109
  Serious: Yes (Life-Threatening)
  Sender: FDA-Public Use
  Company Number: PHHY2008CO21579

PATIENT
  Sex: Female

DRUGS (1)
  1. ACLASTA [Suspect]
     Indication: OSTEOPOROSIS
     Dosage: 1 INFUSION (5 MG/100 ML SOLUTION) ANNUAL
     Dates: start: 20071128

REACTIONS (2)
  - HIP FRACTURE [None]
  - SURGERY [None]
